FAERS Safety Report 12474100 (Version 1)
Quarter: 2016Q2

REPORT INFORMATION
  Report Type: Report from Study
  Country: JP (occurrence: JP)
  Receive Date: 20160616
  Receipt Date: 20160616
  Transmission Date: 20160815
  Serious: Yes (Other)
  Sender: FDA-Public Use
  Company Number: JP-BAXTER-2016BAX030601

PATIENT
  Age: 71 Year
  Sex: Female

DRUGS (15)
  1. ESLAX [Concomitant]
     Active Substance: ROCURONIUM BROMIDE
     Indication: MUSCLE RELAXANT THERAPY
     Route: 065
     Dates: start: 20121023, end: 20121023
  2. XYLOCAINE [Concomitant]
     Active Substance: LIDOCAINE HYDROCHLORIDE
     Indication: INDUCTION OF ANAESTHESIA
     Route: 065
     Dates: start: 20121023, end: 20121023
  3. PRIMPERAN [Concomitant]
     Active Substance: METOCLOPRAMIDE HYDROCHLORIDE
     Indication: PROPHYLAXIS
     Route: 065
     Dates: start: 20121023, end: 20121023
  4. ULTIVA [Concomitant]
     Active Substance: REMIFENTANIL HYDROCHLORIDE
     Indication: INDUCTION OF ANAESTHESIA
     Route: 065
     Dates: start: 20121023, end: 20121023
  5. ANAPEINE [Concomitant]
     Active Substance: ROPIVACAINE HYDROCHLORIDE
     Indication: ANALGESIC THERAPY
     Route: 065
     Dates: start: 20121023, end: 20121023
  6. ROPION [Concomitant]
     Active Substance: FLURBIPROFEN AXETIL
     Indication: ANALGESIC THERAPY
     Route: 065
     Dates: start: 20121023, end: 20121023
  7. ALTAT [Concomitant]
     Indication: PROPHYLAXIS
     Route: 065
     Dates: start: 20121023, end: 20121023
  8. ANAPEINE [Concomitant]
     Active Substance: ROPIVACAINE HYDROCHLORIDE
     Indication: GENERAL ANAESTHESIA
     Route: 065
     Dates: start: 20121023, end: 20121023
  9. BRIDION [Concomitant]
     Active Substance: SUGAMMADEX
     Indication: ANAESTHESIA REVERSAL
     Route: 065
     Dates: start: 20121023, end: 20121023
  10. SUPRANE [Suspect]
     Active Substance: DESFLURANE
     Indication: SURGERY
     Route: 055
     Dates: start: 20121023, end: 20121023
  11. LEPETAN [Concomitant]
     Active Substance: BUPRENORPHINE HYDROCHLORIDE
     Indication: ANALGESIC THERAPY
     Dosage: 400 FEG
     Route: 065
     Dates: start: 20121023
  12. CEFAMEZIN [Concomitant]
     Active Substance: CEFAZOLIN
     Indication: PROPHYLAXIS
     Route: 065
     Dates: start: 20121023
  13. RAVONAL [Concomitant]
     Active Substance: THIOPENTAL
     Indication: INDUCTION OF ANAESTHESIA
     Route: 065
     Dates: start: 20121023, end: 20121023
  14. DROLEPTAN [Concomitant]
     Active Substance: DROPERIDOL
     Indication: PROPHYLAXIS
     Route: 065
     Dates: start: 20121023
  15. MORPHINE HYDROCHLORIDE [Concomitant]
     Active Substance: MORPHINE HYDROCHLORIDE
     Indication: ANAESTHESIA
     Route: 065
     Dates: start: 20121023, end: 20121023

REACTIONS (4)
  - Airway complication of anaesthesia [Recovered/Resolved]
  - Blood pressure decreased [Recovered/Resolved]
  - Nausea [Recovered/Resolved]
  - Vomiting [Recovered/Resolved]

NARRATIVE: CASE EVENT DATE: 20121023
